FAERS Safety Report 5496979-X (Version None)
Quarter: 2007Q4

REPORT INFORMATION
  Report Type: 
  Country: None (occurrence: None)
  Receive Date: 20071023
  Receipt Date: 20071009
  Transmission Date: 20080405
  Serious: Yes (Hospitalization)
  Sender: FDA-Public Use
  Company Number: 2007P1000673

PATIENT
  Age: 0 Year
  Sex: Male

DRUGS (2)
  1. BUSULFAN [Suspect]
     Indication: STEM CELL TRANSPLANT
     Dosage: 0.45 ML; X1; IV, 5.08 ML; X1; IV
     Route: 042
     Dates: start: 20061109, end: 20061109
  2. BUSULFAN [Suspect]
     Indication: STEM CELL TRANSPLANT
     Dosage: 0.45 ML; X1; IV, 5.08 ML; X1; IV
     Route: 042
     Dates: start: 20061116, end: 20061119

REACTIONS (8)
  - ACUTE GRAFT VERSUS HOST DISEASE [None]
  - BONE MARROW TRANSPLANT [None]
  - CHOLECYSTITIS [None]
  - DIARRHOEA [None]
  - HYPOALBUMINAEMIA [None]
  - ORAL INTAKE REDUCED [None]
  - PLATELET COUNT DECREASED [None]
  - SEPSIS [None]
